FAERS Safety Report 14774721 (Version 1)
Quarter: 2018Q2

REPORT INFORMATION
  Report Type: Spontaneous
  Country: AU (occurrence: AU)
  Receive Date: 20180412
  Receipt Date: 20180412
  Transmission Date: 20180711
  Serious: Yes (Life-Threatening, Hospitalization, Disabling, Other)
  Sender: FDA-Public Use
  Company Number: None

PATIENT
  Age: 34 Year
  Sex: Male
  Weight: 100 kg

DRUGS (1)
  1. ZINBRYTA [Suspect]
     Active Substance: DACLIZUMAB
     Route: 058

REACTIONS (14)
  - Headache [None]
  - Speech disorder [None]
  - Encephalitis [None]
  - Anal incontinence [None]
  - Fatigue [None]
  - Emotional disorder [None]
  - Inflammation [None]
  - Quality of life decreased [None]
  - Urinary incontinence [None]
  - Vision blurred [None]
  - Asthenia [None]
  - Central nervous system lesion [None]
  - Balance disorder [None]
  - Amnesia [None]

NARRATIVE: CASE EVENT DATE: 20171120
